APPROVED DRUG PRODUCT: FUROSEMIDE
Active Ingredient: FUROSEMIDE
Strength: 10MG/ML
Dosage Form/Route: INJECTABLE;INJECTION
Application: A070604 | Product #001
Applicant: WATSON LABORATORIES INC
Approved: Jan 2, 1987 | RLD: No | RS: No | Type: DISCN